FAERS Safety Report 7530524-X (Version None)
Quarter: 2011Q2

REPORT INFORMATION
  Report Type: 
  Country: None (occurrence: None)
  Receive Date: 20110607
  Receipt Date: 20110531
  Transmission Date: 20111010
  Serious: Yes (Other)
  Sender: FDA-Public Use
  Company Number: US-ABBOTT-11P-163-0728390-00

PATIENT
  Age: 50 Year
  Sex: Female

DRUGS (4)
  1. ENBREL [Suspect]
     Indication: PSORIASIS
     Dates: start: 20100501, end: 20110501
  2. PROTONIX [Concomitant]
     Indication: GASTROOESOPHAGEAL REFLUX DISEASE
  3. HUMIRA [Suspect]
     Indication: PSORIASIS
     Dosage: 80MG REPEAT OF LOADING DOSE
     Dates: start: 20090101, end: 20100501
  4. HUMIRA [Suspect]
     Dates: start: 20110501

REACTIONS (6)
  - MENORRHAGIA [None]
  - INFECTED BITES [None]
  - OVARIAN CYST [None]
  - PSORIASIS [None]
  - MALAISE [None]
  - DRUG INEFFECTIVE [None]
